FAERS Safety Report 17021841 (Version 1)
Quarter: 2019Q4

REPORT INFORMATION
  Report Type: Spontaneous
  Country: US (occurrence: US)
  Receive Date: 20191112
  Receipt Date: 20191112
  Transmission Date: 20200122
  Serious: Yes (Other)
  Sender: FDA-Public Use
  Company Number: US-JNJFOC-20191102548

PATIENT

DRUGS (1)
  1. NTG 3-IN-1 CONCEALER FOR EYES (TITANIUM DIOXIDE) [Suspect]
     Active Substance: TITANIUM DIOXIDE
     Indication: PRODUCT USED FOR UNKNOWN INDICATION
     Route: 061

REACTIONS (2)
  - Application site reaction [Unknown]
  - Eye burns [Unknown]
